FAERS Safety Report 4596397-2 (Version None)
Quarter: 2005Q1

REPORT INFORMATION
  Report Type: 
  Country: None (occurrence: None)
  Receive Date: 20050225
  Receipt Date: 20050214
  Transmission Date: 20050727
  Serious: No
  Sender: FDA-Public Use
  Company Number: 2004AP06152

PATIENT
  Age: 19 Year
  Sex: Female
  Weight: 33.4 kg

DRUGS (2)
  1. DIPRIVAN [Suspect]
     Indication: SEDATION
     Dosage: 1 % DAILY IV
     Route: 042
     Dates: start: 20030825, end: 20030825
  2. MIDAZOLAM [Concomitant]

REACTIONS (6)
  - CONVULSION [None]
  - FEAR [None]
  - HYPERTHERMIA [None]
  - HYPERTONIA [None]
  - STRESS [None]
  - UNEVALUABLE EVENT [None]
